FAERS Safety Report 5385566-X (Version None)
Quarter: 2007Q3

REPORT INFORMATION
  Report Type: 
  Country: None (occurrence: None)
  Receive Date: 20070709
  Receipt Date: 20070626
  Transmission Date: 20080115
  Serious: Yes (Other)
  Sender: FDA-Public Use
  Company Number: B0477622A

PATIENT
  Age: 62 Year
  Sex: Male

DRUGS (6)
  1. OMEPRAZOLE [Suspect]
     Indication: HELICOBACTER GASTRITIS
  2. AMOXICILLIN TRIHYDRATE [Suspect]
  3. DICLOFENAC (FORMULATION UNKNOWN) (GENERIC) (DICLOFENAC) [Suspect]
     Indication: JOINT INJURY
  4. PANTOPRAZOLE (FORMULATION UNKNOWN) (PANTOPRAZOLE) [Suspect]
     Indication: DYSPEPSIA
  5. CLARITHROMYCIN [Concomitant]
  6. ROFECOXIB [Concomitant]

REACTIONS (2)
  - NEPHRITIS INTERSTITIAL [None]
  - RENAL FAILURE ACUTE [None]
